FAERS Safety Report 25276209 (Version 1)
Quarter: 2025Q2

REPORT INFORMATION
  Report Type: Report from Study
  Country: ZA (occurrence: ZA)
  Receive Date: 20250507
  Receipt Date: 20250507
  Transmission Date: 20250717
  Serious: Yes (Hospitalization, Other)
  Sender: ALEXION PHARMACEUTICALS
  Company Number: ZA-AstraZeneca-CH-00858923A

PATIENT
  Age: 65 Year

DRUGS (4)
  1. DAPAGLIFLOZIN [Suspect]
     Active Substance: DAPAGLIFLOZIN
     Indication: Diabetes mellitus
  2. PREGABALIN [Concomitant]
     Active Substance: PREGABALIN
     Indication: Epilepsy
  3. Stilpane [Concomitant]
     Indication: Pain
  4. Detrunorm XL [Concomitant]
     Indication: Bladder disorder

REACTIONS (4)
  - Fall [Recovered/Resolved]
  - Knee operation [Unknown]
  - Disorganised speech [Unknown]
  - Infection [Unknown]
